FAERS Safety Report 8844661 (Version 1)
Quarter: 2012Q4

REPORT INFORMATION
  Report Type: Spontaneous
  Country: US (occurrence: None)
  Receive Date: 20121016
  Receipt Date: 20121016
  Transmission Date: 20130627
  Serious: Yes (Hospitalization)
  Sender: FDA-Public Use
  Company Number: None

PATIENT
  Age: 96 Year
  Sex: Female
  Weight: 81.8 kg

DRUGS (12)
  1. COUMADIN [Suspect]
     Indication: AFIB
     Dosage: MWF/TTHSS
CHRONIC
     Route: 048
  2. PRILOSEC [Concomitant]
  3. LASIX [Concomitant]
  4. POTASSIUM [Concomitant]
  5. VIT BIZ [Concomitant]
  6. VIT D [Concomitant]
  7. RISPERDAL [Concomitant]
  8. METROPROLOL [Concomitant]
  9. CARAFATE [Concomitant]
  10. REMERON [Concomitant]
  11. LOPERAMIDE [Concomitant]
  12. ZOFRAN [Concomitant]

REACTIONS (4)
  - Upper gastrointestinal haemorrhage [None]
  - Haematemesis [None]
  - International normalised ratio increased [None]
  - Prothrombin time prolonged [None]
